FAERS Safety Report 8321487-8 (Version None)
Quarter: 2012Q2

REPORT INFORMATION
  Report Type: 
  Country: None (occurrence: None)
  Receive Date: 20120430
  Receipt Date: 20120430
  Transmission Date: 20120825
  Serious: No
  Sender: FDA-Public Use
  Company Number: None

PATIENT
  Age: 48 Year
  Sex: Female
  Weight: 54.431 kg

DRUGS (1)
  1. DYSPORT [Suspect]
     Indication: SKIN WRINKLING
     Dates: start: 20120404, end: 20120427

REACTIONS (5)
  - VIITH NERVE PARALYSIS [None]
  - INFLUENZA LIKE ILLNESS [None]
  - UPPER-AIRWAY COUGH SYNDROME [None]
  - EYE SWELLING [None]
  - ASTHENOPIA [None]
